APPROVED DRUG PRODUCT: PROCHLORPERAZINE EDISYLATE
Active Ingredient: PROCHLORPERAZINE EDISYLATE
Strength: EQ 5MG BASE/5ML
Dosage Form/Route: SYRUP;ORAL
Application: A087154 | Product #001
Applicant: ALPHARMA US PHARMACEUTICALS DIVISION
Approved: Sep 1, 1982 | RLD: No | RS: No | Type: DISCN